FAERS Safety Report 6858332-3 (Version None)
Quarter: 2010Q3

REPORT INFORMATION
  Report Type: 
  Country: None (occurrence: None)
  Receive Date: 20100719
  Receipt Date: 20080324
  Transmission Date: 20110219
  Serious: Yes (Other)
  Sender: FDA-Public Use
  Company Number: US-PFIZER INC-2008012254

PATIENT
  Sex: Female
  Weight: 85.7 kg

DRUGS (4)
  1. CHANTIX [Suspect]
     Indication: SMOKING CESSATION THERAPY
     Route: 048
     Dates: start: 20080129
  2. KLONOPIN [Concomitant]
     Indication: ANXIETY
  3. LYRICA [Concomitant]
     Indication: PAIN
  4. NAPROXEN [Concomitant]

REACTIONS (11)
  - ADVERSE DRUG REACTION [None]
  - APATHY [None]
  - ASTHENIA [None]
  - BALANCE DISORDER [None]
  - BEDRIDDEN [None]
  - COORDINATION ABNORMAL [None]
  - DECREASED INTEREST [None]
  - FATIGUE [None]
  - LETHARGY [None]
  - PANIC REACTION [None]
  - UNEVALUABLE EVENT [None]
